FAERS Safety Report 8215115-X (Version None)
Quarter: 2012Q1

REPORT INFORMATION
  Report Type: 
  Country: None (occurrence: None)
  Receive Date: 20120316
  Receipt Date: 20120313
  Transmission Date: 20120608
  Serious: Yes (Death, Other)
  Sender: FDA-Public Use
  Company Number: US-SANOFI-AVENTIS-2012SA017503

PATIENT
  Sex: Male

DRUGS (2)
  1. ASPIRIN [Suspect]
     Route: 065
     Dates: start: 19971101
  2. PLAVIX [Suspect]
     Route: 065
     Dates: start: 19971101

REACTIONS (4)
  - GASTROINTESTINAL HAEMORRHAGE [None]
  - CEREBROVASCULAR ACCIDENT [None]
  - DEATH [None]
  - ULCER HAEMORRHAGE [None]
